FAERS Safety Report 4537916-1 (Version None)
Quarter: 2004Q4

REPORT INFORMATION
  Report Type: 
  Country: None (occurrence: None)
  Receive Date: 20041224
  Receipt Date: 19970604
  Transmission Date: 20050328
  Serious: Yes (Other)
  Sender: FDA-Public Use
  Company Number: PHBS1997BR06307

PATIENT
  Age: 59 Year
  Sex: Female
  Weight: 62 kg

DRUGS (1)
  1. DIOVAN [Suspect]
     Indication: HYPERTENSION
     Dosage: 1 CAPSULE DAILY
     Route: 048
     Dates: start: 19970521

REACTIONS (2)
  - COUGH [None]
  - LARYNGEAL OEDEMA [None]
